FAERS Safety Report 19741681 (Version 2)
Quarter: 2021Q3

REPORT INFORMATION
  Report Type: Spontaneous
  Country: NL (occurrence: NL)
  Receive Date: 20210824
  Receipt Date: 20210830
  Transmission Date: 20211014
  Serious: Yes (Other)
  Sender: FDA-Public Use
  Company Number: NL-PFIZER INC-202101026363

PATIENT
  Age: 44 Year
  Sex: Female

DRUGS (3)
  1. OXALIPLATIN. [Suspect]
     Active Substance: OXALIPLATIN
     Indication: COLON CANCER METASTATIC
     Dosage: UNK, CYCLIC
     Dates: start: 2019, end: 2020
  2. BEVACIZUMAB. [Concomitant]
     Active Substance: BEVACIZUMAB
     Indication: COLON CANCER METASTATIC
     Dosage: UNK, CYCLIC
     Dates: start: 2019
  3. CAPECITABINE. [Concomitant]
     Active Substance: CAPECITABINE
     Indication: COLON CANCER METASTATIC
     Dosage: UNK, CYCLIC
     Dates: start: 2019

REACTIONS (3)
  - Muscle spasms [Unknown]
  - Neuropathy peripheral [Unknown]
  - Oropharyngeal discomfort [Unknown]
